FAERS Safety Report 5209242-9 (Version None)
Quarter: 2007Q1

REPORT INFORMATION
  Report Type: 
  Country: None (occurrence: None)
  Receive Date: 20070116
  Receipt Date: 20070103
  Transmission Date: 20070707
  Serious: Yes (Other)
  Sender: FDA-Public Use
  Company Number: FR-ELI_LILLY_AND_COMPANY-FR200701000685

PATIENT
  Age: 14 Year
  Sex: Female

DRUGS (4)
  1. PROZAC [Suspect]
     Indication: DEPRESSION
     Dosage: 5 MG, DAILY (1/D)
     Route: 048
     Dates: start: 20061220, end: 20061223
  2. PROZAC [Suspect]
     Dosage: 10 MG, DAILY (1/D)
     Route: 048
     Dates: start: 20061223, end: 20061226
  3. PROZAC [Suspect]
     Dosage: 15 MG, DAILY (1/D)
     Route: 048
     Dates: start: 20061226, end: 20061229
  4. PROZAC [Suspect]
     Dosage: 20 MG, DAILY (1/D)
     Route: 048
     Dates: start: 20061229

REACTIONS (2)
  - IMPULSIVE BEHAVIOUR [None]
  - INTENTIONAL SELF-INJURY [None]
